FAERS Safety Report 23980103 (Version 1)
Quarter: 2024Q2

REPORT INFORMATION
  Report Type: Spontaneous
  Country: US (occurrence: US)
  Receive Date: 20240617
  Receipt Date: 20240617
  Transmission Date: 20240715
  Serious: No
  Sender: FDA-Public Use
  Company Number: US-STRIDES ARCOLAB LIMITED-2024SP001520

PATIENT
  Age: 34 Year
  Sex: Female

DRUGS (6)
  1. DEXTROAMPHETAMINE SULFATE [Suspect]
     Active Substance: DEXTROAMPHETAMINE SULFATE
     Indication: Ophthalmic migraine
     Dosage: 15 MILLIGRAM (EXTENDED RELEASE CAPSULE)
     Route: 065
  2. FLUOXETINE [Suspect]
     Active Substance: FLUOXETINE HYDROCHLORIDE
     Indication: Ophthalmic migraine
     Dosage: UNK
     Route: 065
  3. PROGESTERONE [Concomitant]
     Active Substance: PROGESTERONE
     Indication: Ophthalmic migraine
     Dosage: UNK
     Route: 065
  4. PENTOSAN POLYSULFATE [Concomitant]
     Active Substance: PENTOSAN POLYSULFATE
     Indication: Cystitis
     Dosage: UNK
     Route: 065
  5. TOPIRAMATE [Concomitant]
     Active Substance: TOPIRAMATE
     Indication: Ophthalmic migraine
     Dosage: UNK
     Route: 065
  6. BCG VACCINE [Concomitant]
     Active Substance: BCG VACCINE
     Indication: Cystitis
     Dosage: UNK
     Route: 065

REACTIONS (1)
  - Off label use [Unknown]
